FAERS Safety Report 14391057 (Version 1)
Quarter: 2018Q1

REPORT INFORMATION
  Report Type: Spontaneous
  Country: US (occurrence: US)
  Receive Date: 20180116
  Receipt Date: 20180116
  Transmission Date: 20180509
  Serious: No
  Sender: FDA-Public Use
  Company Number: US-PFIZER INC-2018015287

PATIENT
  Sex: Female

DRUGS (1)
  1. XELJANZ [Suspect]
     Active Substance: TOFACITINIB CITRATE
     Dosage: UNK
     Dates: start: 2017

REACTIONS (6)
  - Cough [Unknown]
  - Malaise [Unknown]
  - Ear discomfort [Unknown]
  - Pyrexia [Unknown]
  - Hypoacusis [Unknown]
  - Influenza [Unknown]
